FAERS Safety Report 4650598-3 (Version None)
Quarter: 2005Q2

REPORT INFORMATION
  Report Type: 
  Country: None (occurrence: None)
  Receive Date: 20050503
  Receipt Date: 20050425
  Transmission Date: 20051028
  Serious: Yes (Hospitalization, Other)
  Sender: FDA-Public Use
  Company Number: CH-RB-1560-2005

PATIENT
  Age: 44 Year
  Sex: Male

DRUGS (12)
  1. BUPRENORPHINE HCL [Suspect]
     Indication: PAIN
     Dosage: 0.2 MG TO 0.6 MG
     Route: 048
     Dates: start: 20050127, end: 20050228
  2. PREDNISONE [Suspect]
     Indication: RENAL TRANSPLANT
     Route: 048
  3. CYCLOSPORINE [Suspect]
     Indication: RENAL TRANSPLANT
     Route: 048
  4. LORAZEPAM [Suspect]
     Indication: ANXIETY DISORDER
     Route: 048
  5. MYCOPHENOLATE MOFETIL [Concomitant]
     Indication: DRUG USE FOR UNKNOWN INDICATION
     Dosage: 1 G
     Route: 048
  6. ERYTHROPOIETIN HUMAN [Concomitant]
     Indication: DRUG USE FOR UNKNOWN INDICATION
     Dosage: DOSAGE UNKNOWN
     Route: 048
  7. FOLIC ACID [Concomitant]
     Indication: DRUG USE FOR UNKNOWN INDICATION
     Dosage: 5 MG
     Route: 048
  8. ACETAMINOPHEN [Concomitant]
     Indication: PAIN
     Dosage: 4 G
     Route: 048
     Dates: start: 20050127
  9. VANCOMYCIN [Concomitant]
     Indication: ARTHRITIS BACTERIAL
     Dosage: 500 MG
     Route: 048
     Dates: start: 20050127
  10. BECOZYME C [Concomitant]
     Indication: DRUG USE FOR UNKNOWN INDICATION
     Route: 048
     Dates: start: 20050127
  11. THIAMINE HCL [Concomitant]
     Indication: DRUG USE FOR UNKNOWN INDICATION
     Dosage: 300 MG
     Route: 048
     Dates: start: 20050127
  12. HEPARIN-FRACTION, CALCIUM SALT [Concomitant]
     Indication: DRUG USE FOR UNKNOWN INDICATION
     Dosage: 0.3 ML
     Route: 058

REACTIONS (8)
  - ARTHRITIS BACTERIAL [None]
  - BRONCHOPNEUMONIA [None]
  - CARDIAC FAILURE [None]
  - HALLUCINATION [None]
  - HALLUCINATIONS, MIXED [None]
  - INSOMNIA [None]
  - LEFT VENTRICULAR FAILURE [None]
  - SLEEP DISORDER [None]
